FAERS Safety Report 10668482 (Version 2)
Quarter: 2015Q1

REPORT INFORMATION
  Report Type: Spontaneous
  Country: US (occurrence: None)
  Receive Date: 20141217
  Receipt Date: 20150319
  Transmission Date: 20150720
  Serious: No
  Sender: FDA-Public Use
  Company Number: 2014CT000128

PATIENT
  Age: 71 Year
  Sex: Male
  Weight: 96.62 kg

DRUGS (15)
  1. HCTZ [Concomitant]
     Active Substance: HYDROCHLOROTHIAZIDE
  2. EXELON [Concomitant]
     Active Substance: RIVASTIGMINE TARTRATE
  3. VITAMIN C [Concomitant]
     Active Substance: ASCORBIC ACID
  4. COLACE [Concomitant]
     Active Substance: DOCUSATE SODIUM
  5. KORLYM [Suspect]
     Active Substance: MIFEPRISTONE
     Indication: BENIGN NEOPLASM OF ADRENAL GLAND
     Route: 048
     Dates: start: 20140606
  6. FOLIC ACID. [Concomitant]
     Active Substance: FOLIC ACID
  7. KORLYM [Suspect]
     Active Substance: MIFEPRISTONE
     Indication: GLUCOSE TOLERANCE IMPAIRED
     Route: 048
     Dates: start: 20140606
  8. FINASTERIDE. [Concomitant]
     Active Substance: FINASTERIDE
  9. VITAMIN B12 [Concomitant]
     Active Substance: CYANOCOBALAMIN
  10. MIRAPEX [Concomitant]
     Active Substance: PRAMIPEXOLE DIHYDROCHLORIDE
  11. KORLYM [Suspect]
     Active Substance: MIFEPRISTONE
     Indication: CUSHING^S SYNDROME
     Route: 048
     Dates: start: 20140606
  12. ASPIRIN. [Concomitant]
     Active Substance: ASPIRIN
  13. MULTIVITAMIN /00097801/ [Concomitant]
     Active Substance: VITAMINS
  14. DOXAZOSIN [Concomitant]
     Active Substance: DOXAZOSIN\DOXAZOSIN MESYLATE
  15. RAMIPRIL. [Concomitant]
     Active Substance: RAMIPRIL

REACTIONS (3)
  - Eye pain [None]
  - Blindness unilateral [None]
  - Infection [None]

NARRATIVE: CASE EVENT DATE: 201408
